FAERS Safety Report 9176028 (Version 1)
Quarter: 2013Q1

REPORT INFORMATION
  Report Type: Spontaneous
  Country: US (occurrence: US)
  Receive Date: 20130320
  Receipt Date: 20130320
  Transmission Date: 20140127
  Serious: No
  Sender: FDA-Public Use
  Company Number: US-009507513-1303USA006125

PATIENT
  Sex: Female

DRUGS (8)
  1. VICTRELIS [Suspect]
     Dosage: 200 MG, 4 CAPSULES THREE TIMES A DAY WITH MEALS
     Route: 048
  2. RIBAVIRIN [Suspect]
     Route: 048
  3. PEGASYS [Suspect]
     Dosage: PROCLICK
  4. PROCHLORPERAZINE [Concomitant]
  5. BUPROBAN [Concomitant]
  6. PREDNISONE [Concomitant]
  7. PLAQUENIL [Concomitant]
  8. PROTONIX [Concomitant]

REACTIONS (4)
  - Headache [Unknown]
  - Nausea [Unknown]
  - Dysgeusia [Unknown]
  - White blood cell count decreased [Unknown]
